FAERS Safety Report 23037110 (Version 1)
Quarter: 2023Q4

REPORT INFORMATION
  Report Type: Spontaneous
  Country: MX (occurrence: MX)
  Receive Date: 20231006
  Receipt Date: 20231006
  Transmission Date: 20240110
  Serious: No
  Sender: FDA-Public Use
  Company Number: MX-ALKEM LABORATORIES LIMITED-MX-ALKEM-2023-07540

PATIENT
  Age: 31 Year
  Sex: Male

DRUGS (2)
  1. COLCHICINE [Suspect]
     Active Substance: COLCHICINE
     Indication: Myopericarditis
     Dosage: 1 MILLIGRAM, QD (EVERY 24 HOURS)
     Route: 065
  2. IBUPROFEN [Suspect]
     Active Substance: IBUPROFEN
     Indication: Myopericarditis
     Dosage: 400 MILLIGRAM, TID (EVERY EIGHT HOURS)
     Route: 065

REACTIONS (1)
  - Therapy non-responder [Unknown]
